FAERS Safety Report 15589114 (Version 1)
Quarter: 2018Q4

REPORT INFORMATION
  Report Type: Other
  Country: IT (occurrence: IT)
  Receive Date: 20181106
  Receipt Date: 20181106
  Transmission Date: 20190205
  Serious: Yes (Hospitalization)
  Sender: FDA-Public Use
  Company Number: IT-CELLTRION INC.-2018IT023458

PATIENT

DRUGS (12)
  1. REMSIMA [Suspect]
     Active Substance: INFLIXIMAB
     Indication: RHEUMATOID ARTHRITIS
     Dosage: 300 MG, 1 CYCLE
     Route: 042
     Dates: start: 20160202, end: 20160202
  2. REMSIMA [Suspect]
     Active Substance: INFLIXIMAB
     Dosage: 300 MG, 1 CYCLE
     Route: 042
     Dates: start: 20160407, end: 20160407
  3. REUMAFLEX                          /00072603/ [Concomitant]
     Active Substance: HYDROXYCHLOROQUINE SULFATE
  4. REMSIMA [Suspect]
     Active Substance: INFLIXIMAB
     Dosage: 300 MG, 1 CYCLE
     Route: 042
     Dates: start: 20160202, end: 20160202
  5. REMSIMA [Suspect]
     Active Substance: INFLIXIMAB
     Dosage: 300 MG, 1 CYCLE
     Route: 042
     Dates: start: 20160407, end: 20160407
  6. EUTIROX [Concomitant]
     Active Substance: LEVOTHYROXINE SODIUM
     Route: 048
  7. REMSIMA [Suspect]
     Active Substance: INFLIXIMAB
     Dosage: 300 MG, 1 CYCLE
     Route: 042
     Dates: start: 20160407, end: 20160407
  8. REMSIMA [Suspect]
     Active Substance: INFLIXIMAB
     Dosage: 300 MG, 1 CYCLE
     Route: 042
     Dates: start: 20160202, end: 20160202
  9. DELTACORTENE [Concomitant]
     Active Substance: PREDNISONE
     Dosage: 5 MG
     Route: 048
  10. OMEPRAZOLE. [Concomitant]
     Active Substance: OMEPRAZOLE
     Dosage: 20 MG
     Route: 048
  11. FOLIDAR [Concomitant]
     Route: 048
  12. DIBASE [Concomitant]
     Active Substance: CHOLECALCIFEROL
     Route: 048

REACTIONS (3)
  - Arthralgia [Recovering/Resolving]
  - Haematoma [Recovering/Resolving]
  - Swelling [Recovering/Resolving]

NARRATIVE: CASE EVENT DATE: 20160407
